FAERS Safety Report 25592444 (Version 1)
Quarter: 2025Q3

REPORT INFORMATION
  Report Type: Spontaneous
  Country: US (occurrence: US)
  Receive Date: 20250722
  Receipt Date: 20250722
  Transmission Date: 20251021
  Serious: Yes (Other)
  Sender: TAKEDA
  Company Number: US-TAKEDA-2025TUS064411

PATIENT
  Age: 74 Year
  Sex: Male

DRUGS (3)
  1. FRUZAQLA [Suspect]
     Active Substance: FRUQUINTINIB
     Indication: Colon cancer stage IV
  2. FRUZAQLA [Suspect]
     Active Substance: FRUQUINTINIB
     Indication: Metastases to lung
  3. FRUZAQLA [Suspect]
     Active Substance: FRUQUINTINIB
     Indication: Metastases to lymph nodes

REACTIONS (4)
  - Thrombocytopenia [Unknown]
  - Somnolence [Unknown]
  - Hypertension [Unknown]
  - Decreased appetite [Unknown]
